FAERS Safety Report 5780620-2 (Version None)
Quarter: 2008Q2

REPORT INFORMATION
  Report Type: 
  Country: None (occurrence: None)
  Receive Date: 20080620
  Receipt Date: 20080613
  Transmission Date: 20081010
  Serious: Yes (Hospitalization)
  Sender: FDA-Public Use
  Company Number: IN-ELI_LILLY_AND_COMPANY-IN200806003373

PATIENT
  Sex: Female
  Weight: 106 kg

DRUGS (6)
  1. BYETTA [Suspect]
     Indication: TYPE 2 DIABETES MELLITUS
     Dosage: 5 UG, UNKNOWN
     Route: 058
     Dates: start: 20080401, end: 20080101
  2. BYETTA [Suspect]
     Dosage: 10 UG, 2/D
     Route: 058
     Dates: start: 20080101, end: 20080601
  3. TORSEMIDE [Concomitant]
     Indication: OEDEMA PERIPHERAL
     Dosage: 20 MG, UNKNOWN
     Route: 048
  4. FLUCONAZOLE [Concomitant]
     Dosage: 150 MG, UNKNOWN
     Route: 048
     Dates: start: 20050101
  5. ORAL ANTIDIABETICS [Concomitant]
     Dosage: UNK, UNKNOWN
     Route: 048
  6. ANTIHYPERTENSIVES [Concomitant]
     Dosage: UNK, UNKNOWN
     Route: 065

REACTIONS (1)
  - BLOOD GLUCOSE INCREASED [None]
